FAERS Safety Report 4551355-9 (Version None)
Quarter: 2005Q1

REPORT INFORMATION
  Report Type: 
  Country: None (occurrence: None)
  Receive Date: 20050113
  Receipt Date: 20050105
  Transmission Date: 20050727
  Serious: Yes (Other)
  Sender: FDA-Public Use
  Company Number: JP-MERCK-0501USA00454

PATIENT
  Age: 68 Year
  Sex: Female

DRUGS (2)
  1. PRIMAXIN [Suspect]
     Route: 030
  2. PHENYTOIN SODIUM CAP [Suspect]
     Route: 065

REACTIONS (6)
  - ACCIDENTAL OVERDOSE [None]
  - CONVULSION [None]
  - MEDICATION ERROR [None]
  - OVERDOSE [None]
  - PARTIAL SEIZURES [None]
  - RESPIRATORY DEPRESSION [None]
